FAERS Safety Report 25184059 (Version 1)
Quarter: 2025Q2

REPORT INFORMATION
  Report Type: Spontaneous
  Country: US (occurrence: US)
  Receive Date: 20250410
  Receipt Date: 20250410
  Transmission Date: 20250716
  Serious: No
  Sender: PURACAP
  Company Number: US-PURACAP-US-2025EPCSPO00382

PATIENT
  Age: 90 Year
  Sex: Female

DRUGS (1)
  1. ERGOCALCIFEROL [Suspect]
     Active Substance: ERGOCALCIFEROL
     Indication: Product used for unknown indication
     Route: 048

REACTIONS (1)
  - Product use complaint [Unknown]
